FAERS Safety Report 7002564-0 (Version None)
Quarter: 2010Q3

REPORT INFORMATION
  Report Type: 
  Country: None (occurrence: None)
  Receive Date: 20100917
  Receipt Date: 20100917
  Transmission Date: 20110219
  Serious: No
  Sender: FDA-Public Use
  Company Number: None

PATIENT
  Sex: Female
  Weight: 58.9676 kg

DRUGS (2)
  1. VENLAFAXINE HCL EXTENDED-RELEASE [Suspect]
     Indication: ANXIETY
     Dosage: 150 MG TID PO
     Route: 048
     Dates: start: 20100805, end: 20100910
  2. VENLAFAXINE HCL EXTENDED-RELEASE [Suspect]
     Indication: DEPRESSION
     Dosage: 150 MG TID PO
     Route: 048
     Dates: start: 20100805, end: 20100910

REACTIONS (3)
  - FATIGUE [None]
  - HEADACHE [None]
  - PRODUCT SUBSTITUTION ISSUE [None]
